FAERS Safety Report 7029250-5 (Version None)
Quarter: 2010Q4

REPORT INFORMATION
  Report Type: 
  Country: None (occurrence: None)
  Receive Date: 20101005
  Receipt Date: 20100922
  Transmission Date: 20110411
  Serious: Yes (Other)
  Sender: FDA-Public Use
  Company Number: US-ELI_LILLY_AND_COMPANY-US201009007094

PATIENT
  Sex: Female

DRUGS (2)
  1. FORTEO [Suspect]
     Dosage: 28 UG, UNK
  2. PREDNISONE [Concomitant]
     Dosage: 60 MG, DAILY (1/D)

REACTIONS (2)
  - BONE DENSITY DECREASED [None]
  - DRUG INEFFECTIVE [None]
